FAERS Safety Report 8506544-5 (Version None)
Quarter: 2012Q3

REPORT INFORMATION
  Report Type: 
  Country: None (occurrence: None)
  Receive Date: 20120712
  Receipt Date: 20120604
  Transmission Date: 20120928
  Serious: No
  Sender: FDA-Public Use
  Company Number: US-GLAXOSMITHKLINE-A0980071A

PATIENT
  Age: 90 Year
  Sex: Male

DRUGS (5)
  1. JALYN [Suspect]
     Indication: BENIGN PROSTATIC HYPERPLASIA
     Dosage: 1CAP PER DAY
     Route: 048
     Dates: start: 20100101
  2. HEART MEDICATION [Concomitant]
  3. FISH OIL [Concomitant]
  4. GLAUCOMA MEDICATION (UNSPECIFIED) [Concomitant]
  5. MULTIPLE VITAMINS [Concomitant]

REACTIONS (3)
  - BREAST TENDERNESS [None]
  - BREAST HYPERPLASIA [None]
  - NIPPLE PAIN [None]
